FAERS Safety Report 8775231 (Version 4)
Quarter: 2012Q4

REPORT INFORMATION
  Report Type: 
  Country: JP (occurrence: JP)
  Receive Date: 20120910
  Receipt Date: 20121002
  Transmission Date: 20130627
  Serious: Yes (Death, Hospitalization)
  Sender: FDA-Public Use
  Company Number: JP-UCBSA-064521

PATIENT
  Age: 52 Year
  Sex: Male
  Weight: 62.8 kg

DRUGS (4)
  1. E KEPPRA [Suspect]
     Indication: CONVULSION
     Route: 048
     Dates: start: 20120802, end: 20120806
  2. E KEPPRA [Suspect]
     Indication: CONVULSION
     Route: 048
     Dates: start: 20120807, end: 20120809
  3. PHENOBAL [Suspect]
     Indication: CONVULSION
     Dosage: DAILY DOSE : 90 MG
     Route: 048
     Dates: start: 20120730, end: 20120809
  4. ROHYPNOL [Suspect]
     Indication: INSOMNIA
     Dosage: DAILY DOSE : 2 MG
     Route: 048
     Dates: start: 20120506, end: 20120809

REACTIONS (3)
  - Subdural haematoma [Fatal]
  - Dizziness [Fatal]
  - Abnormal behaviour [Not Recovered/Not Resolved]
